FAERS Safety Report 5194854-1 (Version None)
Quarter: 2006Q4

REPORT INFORMATION
  Report Type: 
  Country: None (occurrence: None)
  Receive Date: 20061227
  Receipt Date: 20061215
  Transmission Date: 20070319
  Serious: Yes (Death)
  Sender: FDA-Public Use
  Company Number: SYMT20060002

PATIENT
  Age: 9 Year
  Sex: Male

DRUGS (2)
  1. SYMMETREL [Suspect]
     Indication: AUTISM
     Dosage: 125 MG Q12H PO
     Route: 048
     Dates: end: 20060201
  2. TRAZODONE                              UNKNOWN UNKNOWN [Suspect]
     Indication: AUTISM
     Dates: end: 20060201

REACTIONS (2)
  - DRUG TOXICITY [None]
  - PRESCRIBED OVERDOSE [None]
